FAERS Safety Report 4969241-9 (Version None)
Quarter: 2006Q2

REPORT INFORMATION
  Report Type: 
  Country: None (occurrence: None)
  Receive Date: 20060405
  Receipt Date: 20060323
  Transmission Date: 20061013
  Serious: Yes (Other)
  Sender: FDA-Public Use
  Company Number: 2006042531

PATIENT
  Age: 39 Year
  Sex: Male
  Weight: 104.3273 kg

DRUGS (5)
  1. BEXTRA [Suspect]
     Indication: JOINT INJURY
     Dosage: 20 MG (10 MG, 2 IN 1 D), ORAL
     Route: 048
     Dates: start: 20040101, end: 20040601
  2. LIPITOR [Suspect]
     Indication: BLOOD CHOLESTEROL INCREASED
     Dosage: 10 MG
     Dates: start: 20050101, end: 20050101
  3. PAXIL [Concomitant]
  4. XANAX [Concomitant]
  5. AMITRIPTYLINE (AMITRIPTYLINE) [Concomitant]

REACTIONS (10)
  - BLISTER [None]
  - BLOOD CHOLESTEROL INCREASED [None]
  - DRUG INEFFECTIVE [None]
  - FATIGUE [None]
  - INFLUENZA LIKE ILLNESS [None]
  - PAIN [None]
  - PANIC ATTACK [None]
  - SCAB [None]
  - STOMACH DISCOMFORT [None]
  - THERAPY NON-RESPONDER [None]
